FAERS Safety Report 7283394-1 (Version None)
Quarter: 2011Q1

REPORT INFORMATION
  Report Type: 
  Country: None (occurrence: None)
  Receive Date: 20110209
  Receipt Date: 20100729
  Transmission Date: 20110831
  Serious: No
  Sender: FDA-Public Use
  Company Number: A0874510A

PATIENT
  Sex: Female

DRUGS (1)
  1. PAXIL [Suspect]

REACTIONS (3)
  - AGITATION [None]
  - SKIN WARM [None]
  - DRUG INEFFECTIVE [None]
